FAERS Safety Report 13372522 (Version 3)
Quarter: 2017Q2

REPORT INFORMATION
  Report Type: Report from Study
  Country: US (occurrence: US)
  Receive Date: 20170327
  Receipt Date: 20170427
  Transmission Date: 20170830
  Serious: No
  Sender: FDA-Public Use
  Company Number: US-AMGEN-USASL2017043504

PATIENT
  Age: 63 Year
  Sex: Female

DRUGS (1)
  1. ENBREL [Suspect]
     Active Substance: ETANERCEPT
     Indication: RHEUMATOID ARTHRITIS
     Dosage: 50 MG, QWK
     Route: 065
     Dates: start: 20170308, end: 201703

REACTIONS (10)
  - Injection site pruritus [Unknown]
  - Injection site recall reaction [Unknown]
  - Injection site exfoliation [Unknown]
  - Injection site mass [Unknown]
  - Pruritus generalised [Unknown]
  - Anxiety [Unknown]
  - Injection site erythema [Unknown]
  - Injection site warmth [Unknown]
  - Headache [Unknown]
  - Injection site swelling [Unknown]

NARRATIVE: CASE EVENT DATE: 201703
